FAERS Safety Report 13491048 (Version 1)
Quarter: 2017Q2

REPORT INFORMATION
  Report Type: Not Available
  Country: US (occurrence: US)
  Receive Date: 20170427
  Receipt Date: 20170427
  Transmission Date: 20170830
  Serious: No
  Sender: FDA-Public Use
  Company Number: US-ANIPHARMA-2017-US-004146

PATIENT
  Age: 62 Year
  Sex: Male
  Weight: 77.11 kg

DRUGS (2)
  1. INDERAL LA [Suspect]
     Active Substance: PROPRANOLOL HYDROCHLORIDE
  2. INDERAL LA [Suspect]
     Active Substance: PROPRANOLOL HYDROCHLORIDE
     Dosage: 80MG ONCE DAILY IN MORNING
     Route: 048

REACTIONS (3)
  - Chills [Not Recovered/Not Resolved]
  - Fatigue [Unknown]
  - Cold sweat [Not Recovered/Not Resolved]
